FAERS Safety Report 5642521-X (Version None)
Quarter: 2008Q1

REPORT INFORMATION
  Report Type: 
  Country: None (occurrence: None)
  Receive Date: 20080227
  Receipt Date: 20080227
  Transmission Date: 20080703
  Serious: No
  Sender: FDA-Public Use
  Company Number: None

PATIENT
  Age: 63 Year
  Sex: Male

DRUGS (2)
  1. SOTALOL HCL [Suspect]
     Dosage: 120MG PO BID
     Route: 048
  2. SOTALOL HCL [Suspect]

REACTIONS (3)
  - BLOOD PRESSURE INCREASED [None]
  - DRUG EFFECT DECREASED [None]
  - PHARMACEUTICAL PRODUCT COMPLAINT [None]
